FAERS Safety Report 20369980 (Version 1)
Quarter: 2022Q1

REPORT INFORMATION
  Report Type: Spontaneous
  Country: ES (occurrence: ES)
  Receive Date: 20220124
  Receipt Date: 20220124
  Transmission Date: 20220423
  Serious: Yes (Hospitalization)
  Sender: FDA-Public Use
  Company Number: None

PATIENT
  Age: 81 Year
  Sex: Male

DRUGS (1)
  1. RITUXIMAB [Suspect]
     Active Substance: RITUXIMAB
     Dosage: UNK
     Dates: start: 20210111

REACTIONS (4)
  - Diarrhoea [Unknown]
  - Vomiting [Unknown]
  - Feeling hot [Unknown]
  - Nausea [Unknown]

NARRATIVE: CASE EVENT DATE: 20210111
